FAERS Safety Report 5630364-2 (Version None)
Quarter: 2008Q1

REPORT INFORMATION
  Report Type: 
  Country: None (occurrence: None)
  Receive Date: 20080219
  Receipt Date: 20080214
  Transmission Date: 20080703
  Serious: Yes (Disabling)
  Sender: FDA-Public Use
  Company Number: US-BRISTOL-MYERS SQUIBB COMPANY-14077424

PATIENT
  Age: 87 Year
  Sex: Female
  Weight: 44 kg

DRUGS (8)
  1. COUMADIN [Suspect]
     Dosage: UNK-JAN/30/08-5 MG QD, PO. RESTARTED ON FEB/03/08-CONT-5 MG, QD, PO.
     Route: 048
  2. PACERONE [Suspect]
     Indication: ATRIAL FIBRILLATION
     Dosage: REDUCED TO 400 MG QD. THERAPY HELD FOR 2 DAYS AND RESTARTED ON 31JAN08, 200MG QD,-CONT
     Route: 048
     Dates: start: 20080114, end: 20080128
  3. SYNTHROID [Concomitant]
  4. HYDROCHLOROTHIAZIDE [Concomitant]
  5. POTASSIUM CHLORIDE [Concomitant]
  6. TOPROL-XL [Concomitant]
  7. BENAZEPRIL HCL [Concomitant]
  8. XALATAN [Concomitant]

REACTIONS (6)
  - ASTHENIA [None]
  - BLOOD GLUCOSE INCREASED [None]
  - BLOOD POTASSIUM DECREASED [None]
  - DRUG INTERACTION [None]
  - INTERNATIONAL NORMALISED RATIO INCREASED [None]
  - TREMOR [None]
